FAERS Safety Report 16262641 (Version 1)
Quarter: 2019Q2

REPORT INFORMATION
  Report Type: Spontaneous
  Country: US (occurrence: US)
  Receive Date: 20190502
  Receipt Date: 20190502
  Transmission Date: 20190711
  Serious: No
  Sender: FDA-Public Use
  Company Number: US-LUPIN PHARMACEUTICALS INC.-2019-01830

PATIENT
  Age: 55 Year
  Sex: Male

DRUGS (5)
  1. BUPROPION. [Suspect]
     Active Substance: BUPROPION
     Indication: PRODUCT USED FOR UNKNOWN INDICATION
     Dosage: 150 MILLIGRAM, QD
     Route: 065
  2. QUETIAPINE. [Concomitant]
     Active Substance: QUETIAPINE
     Indication: PRODUCT USED FOR UNKNOWN INDICATION
     Dosage: 300 MILLIGRAM, QD, AT BEDTIME
     Route: 065
  3. DRONABINOL. [Suspect]
     Active Substance: DRONABINOL
     Indication: HIV WASTING SYNDROME
     Dosage: 2.5 MILLIGRAM, BID
     Route: 065
     Dates: start: 20170519
  4. DRONABINOL. [Suspect]
     Active Substance: DRONABINOL
     Indication: WEIGHT DECREASED
     Dosage: 5 MILLIGRAM, BID
     Route: 065
     Dates: start: 20170721
  5. TRAZODONE [Suspect]
     Active Substance: TRAZODONE HYDROCHLORIDE
     Indication: PRODUCT USED FOR UNKNOWN INDICATION
     Dosage: 50 TO 100 MG, AT BEDTIME
     Route: 065

REACTIONS (1)
  - Hypomania [Recovered/Resolved]
